FAERS Safety Report 7428567-X (Version None)
Quarter: 2011Q2

REPORT INFORMATION
  Report Type: 
  Country: None (occurrence: None)
  Receive Date: 20110421
  Receipt Date: 20100116
  Transmission Date: 20111010
  Serious: Yes (Death, Hospitalization, Other)
  Sender: FDA-Public Use
  Company Number: US-BAYER-201011489NA

PATIENT
  Age: 56 Year
  Sex: Male

DRUGS (7)
  1. NEOMYCIN [Concomitant]
     Dosage: 500 MG, UNK
     Route: 048
  2. TRASYLOL [Suspect]
     Indication: CORONARY ARTERY BYPASS
     Dates: start: 20060501
  3. TRASYLOL [Suspect]
     Indication: THERAPEUTIC EMBOLISATION
     Dosage: UNK
     Dates: start: 20060428
  4. VANCOMYCIN [Concomitant]
     Dosage: 1 G, BID
     Route: 042
     Dates: start: 20060412
  5. CONTRAST MEDIA [Concomitant]
     Route: 042
  6. CASPOFUNGIN [Concomitant]
     Dosage: 1000 MG, UNK
     Route: 042
     Dates: start: 20060503
  7. AMIKACIN [Concomitant]
     Dosage: 1000 MG, UNK
     Route: 042
     Dates: start: 20060503

REACTIONS (14)
  - CEREBROVASCULAR ACCIDENT [None]
  - RENAL INJURY [None]
  - CARDIAC DISORDER [None]
  - UNEVALUABLE EVENT [None]
  - FEAR [None]
  - DEPRESSION [None]
  - DEATH [None]
  - RENAL FAILURE [None]
  - INJURY [None]
  - ORGAN FAILURE [None]
  - ANHEDONIA [None]
  - ANXIETY [None]
  - RENAL IMPAIRMENT [None]
  - PAIN [None]
